FAERS Safety Report 17369283 (Version 1)
Quarter: 2020Q1

REPORT INFORMATION
  Report Type: Spontaneous
  Country: US (occurrence: US)
  Receive Date: 20200203
  Receipt Date: 20200203
  Transmission Date: 20200409
  Serious: Yes (Other)
  Sender: FDA-Public Use
  Company Number: None

PATIENT
  Age: 70 Year
  Sex: Female

DRUGS (13)
  1. ADVAIR DISKU AER 500/50 [Concomitant]
     Dates: start: 20170501
  2. XOLAIR [Suspect]
     Active Substance: OMALIZUMAB
     Dosage: ?          OTHER FREQUENCY:EVERY 2 WEEKS;?
     Route: 058
  3. KELP TAB 150MCG [Concomitant]
     Dates: start: 20170824
  4. AMLODIPINE TAB 2.5MCG [Concomitant]
     Dates: start: 20170501
  5. ALBUTEROL SYP 2MG/5ML [Concomitant]
     Dates: start: 20170501
  6. SINGULAIR TAB 10MG [Concomitant]
     Dates: start: 20170501
  7. LOTENSIN HCT TAB MG [Concomitant]
     Dates: start: 20170501
  8. HYDROXYZINE POW HCL [Concomitant]
     Dates: start: 20170501
  9. EPIPEN 2-PAK INJ 0.3 MG [Concomitant]
     Dates: start: 20170501
  10. ZYRTEC ALLGY TAB 10MG [Concomitant]
     Dates: start: 20170329
  11. CINNAMON CAP [Concomitant]
     Dates: start: 20170501
  12. GLUCOSAMINE CAP CHONDROI [Concomitant]
     Dates: start: 20170501
  13. DIAZEPAM TAB 2MG [Concomitant]
     Dates: start: 20170501

REACTIONS (1)
  - Therapy cessation [None]

NARRATIVE: CASE EVENT DATE: 20191215
